FAERS Safety Report 17101349 (Version 1)
Quarter: 2019Q4

REPORT INFORMATION
  Report Type: Spontaneous
  Country: TR (occurrence: TR)
  Receive Date: 20191202
  Receipt Date: 20191202
  Transmission Date: 20200122
  Serious: Yes (Other)
  Sender: FDA-Public Use
  Company Number: NVSC2019TR048220

PATIENT
  Age: 64 Year
  Sex: Female
  Weight: 75 kg

DRUGS (2)
  1. ZOMETA [Suspect]
     Active Substance: ZOLEDRONIC ACID
     Indication: METASTASES TO BONE
     Dosage: 4 MG (MONTH)
     Route: 042
  2. FEMARA [Concomitant]
     Active Substance: LETROZOLE
     Indication: PRODUCT USED FOR UNKNOWN INDICATION
     Dosage: 2.5 MG
     Route: 048

REACTIONS (5)
  - Swelling face [Recovering/Resolving]
  - Osteonecrosis of jaw [Recovering/Resolving]
  - Mastication disorder [Recovering/Resolving]
  - Dysphagia [Unknown]
  - Trismus [Unknown]

NARRATIVE: CASE EVENT DATE: 20181029
